FAERS Safety Report 7771970-9 (Version None)
Quarter: 2011Q3

REPORT INFORMATION
  Report Type: 
  Country: None (occurrence: None)
  Receive Date: 20110922
  Receipt Date: 20110126
  Transmission Date: 20111222
  Serious: Yes (Other)
  Sender: FDA-Public Use
  Company Number: US-ASTRAZENECA-2010SE51808

PATIENT
  Age: 58 Year
  Sex: Female
  Weight: 88 kg

DRUGS (7)
  1. SEROQUEL [Suspect]
     Route: 048
  2. SEROQUEL [Suspect]
     Indication: BIPOLAR DISORDER
     Route: 048
  3. SEROQUEL [Suspect]
     Indication: PSYCHOTIC DISORDER
     Route: 048
  4. LAMICTAL [Concomitant]
  5. PRISTIQ [Concomitant]
  6. SEROQUEL [Suspect]
     Route: 048
  7. WELLBUTRIN [Concomitant]

REACTIONS (12)
  - DISABILITY [None]
  - INSOMNIA [None]
  - MEMORY IMPAIRMENT [None]
  - FEELING ABNORMAL [None]
  - DRUG DOSE OMISSION [None]
  - MENTAL STATUS CHANGES [None]
  - ELECTROCONVULSIVE THERAPY [None]
  - NAUSEA [None]
  - ABNORMAL BEHAVIOUR [None]
  - IMPAIRED WORK ABILITY [None]
  - SUICIDE ATTEMPT [None]
  - DEPRESSION [None]
